FAERS Safety Report 17802016 (Version 1)
Quarter: 2020Q2

REPORT INFORMATION
  Report Type: Spontaneous
  Country: US (occurrence: US)
  Receive Date: 20200519
  Receipt Date: 20200519
  Transmission Date: 20200714
  Serious: Yes (Hospitalization, Other)
  Sender: FDA-Public Use
  Company Number: US-ALEMBIC PHARMACUETICALS LIMITED-2020SCAL000192

PATIENT

DRUGS (12)
  1. VALPROIC ACID. [Concomitant]
     Active Substance: VALPROIC ACID
     Indication: IMPULSE-CONTROL DISORDER
     Dosage: 750 MILLIGRAM, OD, TOTAL
     Route: 048
  2. LAMOTRIGINE. [Suspect]
     Active Substance: LAMOTRIGINE
     Indication: ATTENTION DEFICIT HYPERACTIVITY DISORDER
     Dosage: 100 MILLIGRAM (13 OF 100 MG PILLS)
  3. SERTRALINE [Suspect]
     Active Substance: SERTRALINE HYDROCHLORIDE
     Indication: POST-TRAUMATIC STRESS DISORDER
     Dosage: 50 MILLIGRAM (13 OF 50MG PILLS)
  4. SEROQUEL [Concomitant]
     Active Substance: QUETIAPINE FUMARATE
     Indication: ATTENTION DEFICIT HYPERACTIVITY DISORDER
     Dosage: 150 MILLIGRAM, OD
  5. ZOLOFT [Concomitant]
     Active Substance: SERTRALINE HYDROCHLORIDE
     Indication: ATTENTION DEFICIT HYPERACTIVITY DISORDER
     Dosage: 100 MILLIGRAM, OD
  6. SEROQUEL [Concomitant]
     Active Substance: QUETIAPINE FUMARATE
     Indication: POST-TRAUMATIC STRESS DISORDER
  7. LAMOTRIGINE. [Suspect]
     Active Substance: LAMOTRIGINE
     Indication: PSYCHIATRIC SYMPTOM
  8. LAMOTRIGINE. [Suspect]
     Active Substance: LAMOTRIGINE
     Indication: POST-TRAUMATIC STRESS DISORDER
  9. SEROQUEL [Concomitant]
     Active Substance: QUETIAPINE FUMARATE
     Indication: PSYCHIATRIC SYMPTOM
  10. VALPROIC ACID. [Concomitant]
     Active Substance: VALPROIC ACID
     Indication: AFFECTIVE DISORDER
  11. SERTRALINE [Suspect]
     Active Substance: SERTRALINE HYDROCHLORIDE
     Indication: PSYCHIATRIC SYMPTOM
  12. ZOLOFT [Concomitant]
     Active Substance: SERTRALINE HYDROCHLORIDE
     Indication: PSYCHIATRIC SYMPTOM

REACTIONS (5)
  - Suicide attempt [Unknown]
  - Unresponsive to stimuli [Unknown]
  - Slow response to stimuli [Unknown]
  - Intentional overdose [Unknown]
  - Therapeutic product cross-reactivity [Unknown]
